FAERS Safety Report 7952430 (Version 5)
Quarter: 2012Q4

REPORT INFORMATION
  Report Type: 
  Country: CA (occurrence: CA)
  Receive Date: 20110519
  Receipt Date: 20120829
  Transmission Date: 20130627
  Serious: Yes (Other)
  Sender: FDA-Public Use
  Company Number: PHHY2011CA39204

PATIENT
  Age: 65 Year
  Sex: Male

DRUGS (3)
  1. AFINITOR [Suspect]
     Indication: NEUROENDOCRINE TUMOUR
     Dosage: 10 mg, QD
     Route: 048
     Dates: start: 20110411, end: 20110502
  2. AFINITOR [Suspect]
     Dosage: 10 mg daily
     Route: 048
     Dates: start: 20110524
  3. SANDOSTATIN LAR [Suspect]
     Indication: NEUROENDOCRINE TUMOUR
     Dosage: 30 mg every 4 weeks
     Route: 030
     Dates: start: 20100610

REACTIONS (15)
  - Heart rate irregular [Unknown]
  - Emotional disorder [Recovered/Resolved]
  - Depression [Recovered/Resolved]
  - Blood glucose increased [Recovered/Resolved]
  - Blood pressure increased [Recovered/Resolved]
  - Stomatitis [Recovered/Resolved]
  - Weight decreased [Recovered/Resolved]
  - Rash generalised [Recovered/Resolved]
  - Fatigue [Recovered/Resolved]
  - Somnolence [Unknown]
  - Platelet count decreased [Recovered/Resolved]
  - Rash macular [Recovered/Resolved]
  - Decreased appetite [Recovered/Resolved]
  - Diarrhoea [Unknown]
  - Bradycardia [Recovered/Resolved]
